FAERS Safety Report 9324042 (Version 2)
Quarter: 2015Q3

REPORT INFORMATION
  Report Type: Spontaneous
  Country: JP (occurrence: JP)
  Receive Date: 20130603
  Receipt Date: 20150909
  Transmission Date: 20151125
  Serious: Yes (Hospitalization, Other)
  Sender: FDA-Public Use
  Company Number: JP-PFIZER INC-2012297236

PATIENT
  Age: 47 Year
  Sex: Female
  Weight: 58 kg

DRUGS (17)
  1. CAMPTO [Suspect]
     Active Substance: IRINOTECAN
     Dosage: 150 MG, 1X/DAY (98.3 MG/M2)
     Route: 041
     Dates: start: 20110928, end: 20110928
  2. FLUOROURACIL. [Suspect]
     Active Substance: FLUOROURACIL
     Indication: COLON CANCER
     Dosage: 625 MG, 1X/DAY (409.6 MG/M2)
     Route: 040
     Dates: start: 20110721, end: 20110721
  3. FLUOROURACIL. [Suspect]
     Active Substance: FLUOROURACIL
     Dosage: 3750 MG, ALTERNATE DAY (2457.4 MG/M2/D1-2)
     Route: 041
     Dates: start: 20110721, end: 20110721
  4. RASENAZOLIN [Concomitant]
     Active Substance: CEFAZOLIN SODIUM
     Dosage: UNK
     Dates: start: 20110803, end: 20110807
  5. CAMPTO [Suspect]
     Active Substance: IRINOTECAN
     Indication: COLON CANCER
     Dosage: 230 MG, 1X/DAY (150.7 MG/M2)
     Route: 041
     Dates: start: 20110721, end: 20110721
  6. CAMPTO [Suspect]
     Active Substance: IRINOTECAN
     Dosage: 110 MG, 1X/DAY (72.1 MG/M2)
     Route: 041
     Dates: start: 20110817, end: 20110817
  7. CAMPTO [Suspect]
     Active Substance: IRINOTECAN
     Dosage: 110 MG, 1X/DAY
     Route: 041
     Dates: start: 20110914, end: 20110914
  8. FLUOROURACIL. [Suspect]
     Active Substance: FLUOROURACIL
     Dosage: 2750 MG, ALTERNATE DAY
     Route: 041
     Dates: start: 20110914, end: 20110914
  9. GRANISETRON [Concomitant]
     Active Substance: GRANISETRON
     Dosage: UNK
     Dates: start: 20110721, end: 20110928
  10. NEUTROGIN [Concomitant]
     Active Substance: LENOGRASTIM
     Dosage: UNK
     Dates: start: 20110803, end: 20111013
  11. FLUOROURACIL. [Suspect]
     Active Substance: FLUOROURACIL
     Dosage: 500 MG, 1X/DAY (327.7 MG/M2)
     Route: 040
     Dates: start: 20110817, end: 20110817
  12. FLUOROURACIL. [Suspect]
     Active Substance: FLUOROURACIL
     Dosage: 500 MG, 1X/DAY
     Route: 040
     Dates: start: 20110928, end: 20110928
  13. FLUOROURACIL. [Suspect]
     Active Substance: FLUOROURACIL
     Dosage: 2750 MG, ALTERNATE DAY (1802.1 MG/M2/D1-2)
     Route: 041
     Dates: start: 20110817, end: 20110817
  14. FLUOROURACIL. [Suspect]
     Active Substance: FLUOROURACIL
     Dosage: 500 MG, 1X/DAY
     Route: 040
     Dates: start: 20110914, end: 20110914
  15. FLUOROURACIL. [Suspect]
     Active Substance: FLUOROURACIL
     Dosage: 2750 MG, ALTERNATE DAY
     Route: 041
     Dates: start: 20110928
  16. ISOVORIN [Concomitant]
     Active Substance: LEUCOVORIN CALCIUM
     Indication: COLON CANCER
     Dosage: 300 MG, 1X/DAY (196.6 MG/M2)
     Route: 040
     Dates: start: 20110721, end: 20110928
  17. DEXART [Concomitant]
     Active Substance: DEXAMETHASONE SODIUM PHOSPHATE
     Dosage: UNK
     Dates: start: 20110721, end: 20110928

REACTIONS (4)
  - Neutropenia [Recovering/Resolving]
  - Thrombocytopenia [Recovering/Resolving]
  - Leukopenia [Recovered/Resolved]
  - Pyrexia [Recovered/Resolved]

NARRATIVE: CASE EVENT DATE: 20110803
